FAERS Safety Report 21920545 (Version 1)
Quarter: 2023Q1

REPORT INFORMATION
  Report Type: Spontaneous
  Country: US (occurrence: US)
  Receive Date: 20230127
  Receipt Date: 20230127
  Transmission Date: 20230418
  Serious: Yes (Other)
  Sender: FDA-Public Use
  Company Number: US-PFIZER INC-PV202300014996

PATIENT
  Age: 62 Year
  Sex: Male

DRUGS (1)
  1. IBRANCE [Suspect]
     Active Substance: PALBOCICLIB
     Dosage: 100 MG, CYCLIC (TAKE 1 CAPSULE (100 MG TOTAL) DAILY. FOR 21 DAYS ON, 7 DAYS OFF (28 DAY CYCLE)
     Route: 048

REACTIONS (2)
  - Nasal sinus cancer [Unknown]
  - Neutropenia [Unknown]
